FAERS Safety Report 8929167 (Version 1)
Quarter: 2012Q4

REPORT INFORMATION
  Report Type: 
  Country: US (occurrence: US)
  Receive Date: 20121128
  Receipt Date: 20121128
  Transmission Date: 20130627
  Serious: Yes (Other)
  Sender: FDA-Public Use
  Company Number: US-SANOFI-AVENTIS-2012SA085268

PATIENT
  Sex: Female

DRUGS (1)
  1. LANTUS [Suspect]
     Indication: DIABETES
     Route: 058

REACTIONS (3)
  - Throat cancer [Unknown]
  - Malignant dysphagia [Unknown]
  - Visual acuity reduced [Not Recovered/Not Resolved]
